FAERS Safety Report 5356936-0 (Version None)
Quarter: 2007Q2

REPORT INFORMATION
  Report Type: 
  Country: None (occurrence: None)
  Receive Date: 20070614
  Receipt Date: 20070606
  Transmission Date: 20071010
  Serious: Yes (Other)
  Sender: FDA-Public Use
  Company Number: JP-ROCHE-491611

PATIENT
  Age: 4 Year
  Sex: Female
  Weight: 18 kg

DRUGS (4)
  1. TAMIFLU [Suspect]
     Dosage: FORM: DRY SYRUP
     Route: 048
     Dates: start: 20070329, end: 20070330
  2. ANALGESICS [Concomitant]
     Dosage: DRUG NAME REPORTED AS ANTIPYRETICS, ANALGESICS AND ANTI-INFLAMMATORY AGENTS.
     Dates: start: 20070329, end: 20070330
  3. SEKICODE [Concomitant]
     Route: 048
     Dates: start: 20070329
  4. ANHIBA [Concomitant]
     Dosage: RECTAL SUPPOSITORY.
     Route: 054
     Dates: start: 20070329

REACTIONS (3)
  - ALTERED STATE OF CONSCIOUSNESS [None]
  - CONVULSION [None]
  - HALLUCINATION [None]
